FAERS Safety Report 7033818-X (Version None)
Quarter: 2010Q4

REPORT INFORMATION
  Report Type: 
  Country: None (occurrence: None)
  Receive Date: 20101007
  Receipt Date: 20100929
  Transmission Date: 20110411
  Serious: Yes (Hospitalization, Other)
  Sender: FDA-Public Use
  Company Number: US-BAXTER-2008BH012975

PATIENT
  Age: 51 Year
  Sex: Female
  Weight: 39 kg

DRUGS (4)
  1. PHENERGAN [Suspect]
     Indication: MIGRAINE
     Route: 042
     Dates: start: 20061109, end: 20061109
  2. TORADOL [Suspect]
     Indication: MIGRAINE
     Route: 042
     Dates: start: 20061109, end: 20061109
  3. TOPAMAX [Concomitant]
     Indication: PRODUCT USED FOR UNKNOWN INDICATION
     Route: 065
  4. WELLBUTRIN [Concomitant]
     Indication: PRODUCT USED FOR UNKNOWN INDICATION
     Route: 065

REACTIONS (18)
  - ANAEMIA [None]
  - ARTERIAL RESTENOSIS [None]
  - ARTERIAL THROMBOSIS LIMB [None]
  - COMPLEX REGIONAL PAIN SYNDROME [None]
  - GRAFT THROMBOSIS [None]
  - INJECTION SITE PAIN [None]
  - MUSCULAR WEAKNESS [None]
  - OEDEMA PERIPHERAL [None]
  - PAIN IN EXTREMITY [None]
  - PARAESTHESIA [None]
  - PERIPHERAL ARTERIAL OCCLUSIVE DISEASE [None]
  - PERIPHERAL COLDNESS [None]
  - PERIPHERAL ISCHAEMIA [None]
  - POOR PERIPHERAL CIRCULATION [None]
  - RAYNAUD'S PHENOMENON [None]
  - SKIN DISCOLOURATION [None]
  - VASCULAR GRAFT COMPLICATION [None]
  - WOUND INFECTION STAPHYLOCOCCAL [None]
